FAERS Safety Report 9893328 (Version 1)
Quarter: 2014Q1

REPORT INFORMATION
  Report Type: Spontaneous
  Country: GB (occurrence: GB)
  Receive Date: 20140213
  Receipt Date: 20140213
  Transmission Date: 20141002
  Serious: Yes (Hospitalization)
  Sender: FDA-Public Use
  Company Number: GB-JNJFOC-20140205820

PATIENT
  Age: 75 Year
  Sex: Female
  Weight: 83 kg

DRUGS (13)
  1. XARELTO [Suspect]
     Indication: EMBOLISM VENOUS
     Route: 048
     Dates: start: 20131014, end: 20140121
  2. XARELTO [Suspect]
     Indication: PULMONARY EMBOLISM
     Route: 048
     Dates: start: 20131014, end: 20140121
  3. DOMPERIDONE [Concomitant]
     Route: 048
  4. IBUPROFEN [Concomitant]
     Route: 061
  5. IBUPROFEN [Concomitant]
     Route: 048
  6. IBUPROFEN [Concomitant]
     Route: 048
  7. PARACETAMOL [Concomitant]
     Route: 048
  8. BENDROFLUMETHIAZIDE [Concomitant]
     Route: 048
  9. CITALOPRAM [Concomitant]
     Route: 048
  10. RANITIDINE [Concomitant]
     Route: 048
  11. LISINOPRIL [Concomitant]
     Route: 048
  12. LOPERAMIDE [Concomitant]
     Route: 048
  13. AMLODIPINE [Concomitant]
     Route: 048

REACTIONS (4)
  - Haemorrhoidal haemorrhage [Recovered/Resolved]
  - Haemorrhoids [Unknown]
  - Rectal haemorrhage [Recovered/Resolved]
  - Haemorrhoids [Unknown]
